FAERS Safety Report 8436054-5 (Version None)
Quarter: 2012Q2

REPORT INFORMATION
  Report Type: 
  Country: None (occurrence: None)
  Receive Date: 20120614
  Receipt Date: 20110510
  Transmission Date: 20120825
  Serious: No
  Sender: FDA-Public Use
  Company Number: US-ASTRAZENECA-2011SE28280

PATIENT

DRUGS (2)
  1. ZOLADEX [Suspect]
     Route: 030
  2. ZOLADEX [Suspect]
     Route: 058

REACTIONS (2)
  - INJECTION SITE SWELLING [None]
  - INCORRECT ROUTE OF DRUG ADMINISTRATION [None]
